FAERS Safety Report 20824119 (Version 3)
Quarter: 2022Q3

REPORT INFORMATION
  Report Type: Report from Study
  Country: US (occurrence: US)
  Receive Date: 20220513
  Receipt Date: 20220927
  Transmission Date: 20221027
  Serious: Yes (Hospitalization, Other)
  Sender: FDA-Public Use
  Company Number: US-BRISTOL-MYERS SQUIBB COMPANY-2022-035200

PATIENT
  Age: 61 Year
  Sex: Female
  Weight: 97.976 kg

DRUGS (2)
  1. REVLIMID [Suspect]
     Active Substance: LENALIDOMIDE
     Indication: Plasma cell myeloma
     Dosage: FREQUENCY: 1 CAPSULE ONCE DAILY FOR 21 DAYS ON, 7 DAYS OFF.?EXPIRY: 30-SEP-2024
     Route: 048
  2. ELIQUIS [Suspect]
     Active Substance: APIXABAN
     Indication: Product used for unknown indication
     Route: 065

REACTIONS (5)
  - Hepatic enzyme abnormal [Recovering/Resolving]
  - Thrombosis [Unknown]
  - Pulmonary thrombosis [Unknown]
  - Asthma [Unknown]
  - Dyspnoea [Unknown]
